FAERS Safety Report 10223113 (Version 1)
Quarter: 2014Q2

REPORT INFORMATION
  Report Type: Spontaneous
  Country: GB (occurrence: GB)
  Receive Date: 20140607
  Receipt Date: 20140607
  Transmission Date: 20141212
  Serious: Yes (Other)
  Sender: FDA-Public Use
  Company Number: PHHY2014GB066375

PATIENT
  Age: 2 Year
  Sex: Female
  Weight: 11.55 kg

DRUGS (6)
  1. AMOXICILLIN [Suspect]
     Dates: start: 20140516
  2. BETAMETHASONE VALERATE [Concomitant]
     Dates: start: 20140120, end: 20140217
  3. DIPROBASE [Concomitant]
     Dates: start: 20140120, end: 20140217
  4. ERYTHROMYCIN ETHYLSUCCINATE [Concomitant]
     Dates: start: 20140516
  5. IBUPROFEN [Concomitant]
     Dates: start: 20140514
  6. PHENOXYMETHYLPENICILLIN [Concomitant]
     Dates: start: 20140516

REACTIONS (2)
  - Malaise [Recovered/Resolved]
  - Rash [Recovered/Resolved]
